FAERS Safety Report 16676703 (Version 1)
Quarter: 2019Q3

REPORT INFORMATION
  Report Type: Spontaneous
  Country: GB (occurrence: GB)
  Receive Date: 20190807
  Receipt Date: 20190807
  Transmission Date: 20191004
  Serious: Yes (Death)
  Sender: FDA-Public Use
  Company Number: GB-ITALFARMACO SPA-2072831

PATIENT
  Sex: Female

DRUGS (1)
  1. TEGLUTIK [Suspect]
     Active Substance: RILUZOLE

REACTIONS (1)
  - Death [Fatal]
